FAERS Safety Report 20865473 (Version 2)
Quarter: 2022Q2

REPORT INFORMATION
  Report Type: Spontaneous
  Country: US (occurrence: US)
  Receive Date: 20220524
  Receipt Date: 20220602
  Transmission Date: 20220721
  Serious: No
  Sender: FDA-Public Use
  Company Number: US-GSKCCFUS-Case-01379625_AE-79714

PATIENT
  Age: 32 Year
  Sex: Female

DRUGS (3)
  1. BENLYSTA [Suspect]
     Active Substance: BELIMUMAB
     Indication: Product used for unknown indication
     Dosage: UNK UNK, Z (EVERY 4 WEEKS), 1040MG (TWO 400MG AND TWO 120MG VIALS)
     Route: 042
     Dates: start: 202108
  2. BENLYSTA [Suspect]
     Active Substance: BELIMUMAB
     Dosage: UNK UNK, Z (EVERY 4 WEEKS), 1040MG (TWO 400MG AND TWO 120MG VIALS)
     Route: 042
     Dates: start: 202108
  3. BENLYSTA [Suspect]
     Active Substance: BELIMUMAB
     Dosage: UNK UNK, Z (EVERY 4 WEEKS), 1040MG (TWO 400MG AND TWO 120MG VIALS)
     Route: 042
     Dates: start: 202108

REACTIONS (4)
  - Blood pressure increased [Recovered/Resolved]
  - Chest pain [Recovered/Resolved]
  - Chest discomfort [Recovered/Resolved]
  - Dyspnoea exertional [Recovered/Resolved]

NARRATIVE: CASE EVENT DATE: 20211128
